FAERS Safety Report 9122487 (Version 2)
Quarter: 2013Q2

REPORT INFORMATION
  Report Type: Spontaneous
  Country: IT (occurrence: IT)
  Receive Date: 20130227
  Receipt Date: 20130405
  Transmission Date: 20140414
  Serious: Yes (Other)
  Sender: FDA-Public Use
  Company Number: IT-BRISTOL-MYERS SQUIBB COMPANY-17402140

PATIENT
  Age: 74 Year
  Sex: Male

DRUGS (8)
  1. COUMADIN TABS 5 MG [Suspect]
     Indication: ATRIAL FIBRILLATION
     Dosage: 1 DF:1 UNIT
     Route: 048
     Dates: start: 20050101, end: 20130110
  2. CARDURA [Concomitant]
     Dosage: TABS
  3. KCL RETARD [Concomitant]
     Dosage: 1 DF:1 UNIT OF KCL RETARD ^600 MG TABLETS
     Route: 048
  4. ANTRA [Concomitant]
     Dosage: 1 DF: 1 UNIT OF ANTRA ^20 MG TABLETS
     Route: 048
  5. LASIX [Concomitant]
     Dosage: FORM:LASIX ^500 MG TABLETS
     Route: 048
  6. CLENIL [Concomitant]
  7. BRONCOVALEAS [Concomitant]
  8. OXIVENT [Concomitant]

REACTIONS (2)
  - Cough [Recovered/Resolved]
  - Haemoptysis [Recovered/Resolved]
